FAERS Safety Report 12849178 (Version 2)
Quarter: 2016Q4

REPORT INFORMATION
  Report Type: Report from Study
  Country: US (occurrence: US)
  Receive Date: 20161014
  Receipt Date: 20161103
  Transmission Date: 20170207
  Serious: Yes (Death, Hospitalization, Other)
  Sender: FDA-Public Use
  Company Number: US-GILEAD-2016-0237602

PATIENT
  Age: 59 Year
  Sex: Male

DRUGS (9)
  1. IPRATROPIUM [Concomitant]
     Active Substance: IPRATROPIUM
  2. METFORMIN [Concomitant]
     Active Substance: METFORMIN HYDROCHLORIDE
  3. IBUPROFEN. [Concomitant]
     Active Substance: IBUPROFEN
  4. LEDIPASVIR/SOFOSBUVIR [Suspect]
     Active Substance: LEDIPASVIR\SOFOSBUVIR
     Indication: HEPATITIS C
     Dosage: 1 DF, UNK
     Route: 048
     Dates: start: 20160819
  5. GLIMEPIRIDE. [Concomitant]
     Active Substance: GLIMEPIRIDE
  6. TURMERIC                           /01079602/ [Concomitant]
     Active Substance: TURMERIC
  7. SYMBICORT [Concomitant]
     Active Substance: BUDESONIDE\FORMOTEROL FUMARATE DIHYDRATE
  8. PAROXETINE. [Concomitant]
     Active Substance: PAROXETINE
  9. JANUVIA [Concomitant]
     Active Substance: SITAGLIPTIN PHOSPHATE

REACTIONS (1)
  - Pulmonary embolism [Fatal]

NARRATIVE: CASE EVENT DATE: 20160829
